FAERS Safety Report 6500531-4 (Version None)
Quarter: 2009Q4

REPORT INFORMATION
  Report Type: 
  Country: None (occurrence: None)
  Receive Date: 20091216
  Receipt Date: 20091204
  Transmission Date: 20100525
  Serious: Yes (Life-Threatening, Hospitalization)
  Sender: FDA-Public Use
  Company Number: FR-BRISTOL-MYERS SQUIBB COMPANY-14892376

PATIENT
  Age: 56 Year
  Sex: Male

DRUGS (6)
  1. GLUCOPHAGE [Suspect]
     Indication: TYPE 2 DIABETES MELLITUS
     Route: 048
     Dates: end: 20090923
  2. ELISOR TABS 20 MG [Concomitant]
     Indication: HYPERCHOLESTEROLAEMIA
     Route: 048
     Dates: end: 20091023
  3. ACTOS [Concomitant]
     Indication: TYPE 2 DIABETES MELLITUS
     Dosage: FORM=TABS
     Route: 048
     Dates: end: 20090923
  4. TRIATEC [Concomitant]
     Indication: HYPERTENSION
     Route: 048
     Dates: end: 20090923
  5. ZYLORIC [Concomitant]
     Indication: HYPERURICAEMIA
     Dosage: FORM=TABS
     Route: 048
     Dates: end: 20090923
  6. NOVONORM [Concomitant]
     Indication: TYPE 2 DIABETES MELLITUS
     Dosage: FORM=TABS
     Route: 048
     Dates: end: 20090923

REACTIONS (4)
  - GASTRIC ULCER [None]
  - HEPATORENAL SYNDROME [None]
  - LACTIC ACIDOSIS [None]
  - RENAL FAILURE ACUTE [None]
